FAERS Safety Report 8324888-7 (Version None)
Quarter: 2012Q1

REPORT INFORMATION
  Report Type: 
  Country: None (occurrence: None)
  Receive Date: 20120315
  Receipt Date: 20110420
  Transmission Date: 20120608
  Serious: No
  Sender: FDA-Public Use
  Company Number: PHHY2011US28311

PATIENT
  Sex: Male

DRUGS (9)
  1. NUVIGIL [Concomitant]
  2. BUSPIRONE HCL [Concomitant]
  3. SIMVASTATIN [Concomitant]
  4. VITAMIN D [Concomitant]
  5. VESICARE [Concomitant]
  6. GILENYA [Suspect]
     Indication: MULTIPLE SCLEROSIS
     Dosage: 0.5 MG, QD, ORAL
     Route: 048
     Dates: start: 20110310
  7. LORAZEPAM [Concomitant]
  8. PROVIGIL (MADOFINIL) [Concomitant]
  9. TIZANIDINE HCL [Concomitant]

REACTIONS (1)
  - FATIGUE [None]
